FAERS Safety Report 25851558 (Version 3)
Quarter: 2025Q4

REPORT INFORMATION
  Report Type: Spontaneous
  Country: JP (occurrence: JP)
  Receive Date: 20250926
  Receipt Date: 20251029
  Transmission Date: 20260118
  Serious: Yes (Other)
  Sender: BAYER HEALTHCARE PHARMACEUTICALS INC.
  Company Number: JP-BAYER-2025A126534

PATIENT
  Age: 47 Year
  Sex: Female

DRUGS (1)
  1. MIRENA [Suspect]
     Active Substance: LEVONORGESTREL
     Indication: Heavy menstrual bleeding
     Dosage: 20?G/DAY
     Route: 015
     Dates: start: 20250130, end: 20251001

REACTIONS (1)
  - Rectal cancer [Unknown]
